FAERS Safety Report 14703023 (Version 2)
Quarter: 2019Q2

REPORT INFORMATION
  Report Type: Report from Study
  Country: None (occurrence: BR)
  Receive Date: 20180402
  Receipt Date: 20190512
  Transmission Date: 20190711
  Serious: Yes (Other)
  Sender: FDA-Public Use
  Company Number: BR-ABBVIE-18K-020-2305584-00

PATIENT
  Age: 53 Year
  Sex: Female
  Weight: 55 kg

DRUGS (1)
  1. HUMIRA [Suspect]
     Active Substance: ADALIMUMAB
     Indication: RHEUMATOID ARTHRITIS
     Route: 058
     Dates: start: 20170814, end: 20180306

REACTIONS (17)
  - Decreased appetite [Unknown]
  - Sinusitis [Not Recovered/Not Resolved]
  - Brain oedema [Recovering/Resolving]
  - Hypophagia [Unknown]
  - Rhinitis [Recovered/Resolved]
  - Weight decreased [Unknown]
  - Sinusitis [Recovered/Resolved]
  - Rhinitis [Not Recovered/Not Resolved]
  - Head injury [Recovering/Resolving]
  - Hypoacusis [Unknown]
  - Muscle injury [Recovering/Resolving]
  - Joint injury [Recovering/Resolving]
  - Pain in extremity [Recovering/Resolving]
  - Musculoskeletal pain [Recovering/Resolving]
  - Amnesia [Recovering/Resolving]
  - Road traffic accident [Recovering/Resolving]
  - Limb injury [Recovering/Resolving]

NARRATIVE: CASE EVENT DATE: 201801
